FAERS Safety Report 7915956-X (Version None)
Quarter: 2011Q4

REPORT INFORMATION
  Report Type: 
  Country: None (occurrence: None)
  Receive Date: 20111115
  Receipt Date: 20111104
  Transmission Date: 20120403
  Serious: Yes (Hospitalization)
  Sender: FDA-Public Use
  Company Number: JP-MERCK-1107USA03875

PATIENT
  Age: 43 Year
  Sex: Female

DRUGS (5)
  1. FOIPAN [Concomitant]
     Indication: PANCREATITIS CHRONIC
     Route: 048
     Dates: start: 20100901
  2. PEPCID [Concomitant]
     Indication: PANCREATITIS CHRONIC
     Route: 048
     Dates: start: 20100901
  3. LORCAM [Concomitant]
     Indication: INSOMNIA
     Route: 048
     Dates: start: 20110601
  4. FOSAMAX [Suspect]
     Indication: OSTEOPOROSIS
     Route: 048
     Dates: start: 20110625, end: 20110717
  5. ALFAROL [Concomitant]
     Indication: OSTEOPOROSIS
     Route: 048
     Dates: start: 20110601

REACTIONS (1)
  - LIVER DISORDER [None]
